FAERS Safety Report 20580393 (Version 4)
Quarter: 2022Q3

REPORT INFORMATION
  Report Type: Report from Study
  Country: CN (occurrence: None)
  Receive Date: 20220311
  Receipt Date: 20220705
  Transmission Date: 20221027
  Serious: Yes (Hospitalization)
  Sender: FDA-Public Use
  Company Number: CN-ROCHE-3043518

PATIENT
  Age: 56 Year
  Sex: Male
  Weight: 60 kg

DRUGS (14)
  1. ATEZOLIZUMAB [Suspect]
     Active Substance: ATEZOLIZUMAB
     Indication: Non-small cell lung cancer
     Dosage: DOSE LAST STUDY DRUG ADMIN PRIOR AE AND SAE WAS 1200 MG AND ON 09/FEB/2022, START DATE OF MOST RECEN
     Route: 041
     Dates: start: 20211109
  2. BEVACIZUMAB [Suspect]
     Active Substance: BEVACIZUMAB
     Indication: Non-small cell lung cancer
     Dosage: SUBSEQUENT DOSES ON 30/NOV/2021, 22/DEC/2021 AND 13/JAN/2022. DOSE LAST STUDY DRUG ADMIN PRIOR AE  A
     Route: 042
     Dates: start: 20211109
  3. CARBOPLATIN [Suspect]
     Active Substance: CARBOPLATIN
     Indication: Non-small cell lung cancer
     Dosage: SUBSEQUENT DOSES ON 30/NOV/2021, 22/DEC/2021 AND 13/JAN/2022. DOSE LAST STUDY DRUG ADMIN PRIOR AE AN
     Route: 042
     Dates: start: 20211109
  4. PEMETREXED [Suspect]
     Active Substance: PEMETREXED
     Indication: Non-small cell lung cancer
     Dosage: SUBSEQUENT DOSES ON 30/NOV/2021, 22/DEC/2021 AND 13/JAN/2022. DOSE LAST STUDY DRUG ADMIN PRIOR AE AN
     Route: 042
     Dates: start: 20211109
  5. FOLIC ACID [Concomitant]
     Active Substance: FOLIC ACID
     Indication: Prophylaxis
     Dates: start: 20210820
  6. DONEPEZIL HYDROCHLORIDE [Concomitant]
     Active Substance: DONEPEZIL HYDROCHLORIDE
     Indication: Prophylaxis
     Dates: start: 20211110
  7. DEXAMETHASONE [Concomitant]
     Active Substance: DEXAMETHASONE
     Indication: Prophylaxis
     Route: 048
     Dates: start: 20220208, end: 20220210
  8. PALONOSETRON HYDROCHLORIDE [Concomitant]
     Active Substance: PALONOSETRON HYDROCHLORIDE
     Indication: Prophylaxis of nausea and vomiting
     Dates: start: 20220209, end: 20220209
  9. PALONOSETRON HYDROCHLORIDE [Concomitant]
     Active Substance: PALONOSETRON HYDROCHLORIDE
     Indication: Prophylaxis of nausea and vomiting
     Dates: start: 20220307, end: 20220307
  10. CARBAZOCHROME SODIUM SULFONATE [Concomitant]
     Active Substance: CARBAZOCHROME SODIUM SULFONATE
     Dates: start: 20220228, end: 20220301
  11. MOSAPRIDE CITRATE [Concomitant]
     Active Substance: MOSAPRIDE CITRATE
     Indication: Prophylaxis
     Dates: start: 20220216, end: 20220228
  12. LANSOPRAZOLE [Concomitant]
     Active Substance: LANSOPRAZOLE
     Dates: start: 20220216, end: 20220228
  13. PLACENTA POLYPEPTIDE [Concomitant]
     Dates: start: 20220224, end: 20220228
  14. CLOSTRIDIUM BUTYRICUM SPORES STRAIN M-55 [Concomitant]
     Active Substance: CLOSTRIDIUM BUTYRICUM SPORES STRAIN M-55
     Dates: start: 20220305

REACTIONS (1)
  - Cough [Not Recovered/Not Resolved]

NARRATIVE: CASE EVENT DATE: 20220223
